FAERS Safety Report 13567795 (Version 1)
Quarter: 2017Q2

REPORT INFORMATION
  Report Type: Spontaneous
  Country: US (occurrence: US)
  Receive Date: 20170522
  Receipt Date: 20170522
  Transmission Date: 20170830
  Serious: Yes (Hospitalization, Disabling, Other)
  Sender: FDA-Public Use
  Company Number: None

PATIENT
  Age: 80 Year
  Sex: Female
  Weight: 72.64 kg

DRUGS (5)
  1. SIMPONI [Suspect]
     Active Substance: GOLIMUMAB
     Indication: RHEUMATOID ARTHRITIS
     Dosage: QUANTITY:ONE INJECTION;?FREQUENCY - ONE TIME MONTHLY?ROUTE - INJECTION INTO THE LEG
     Dates: start: 201304, end: 201407
  2. LEXAPRO HCL [Concomitant]
  3. AMLODIPINE [Concomitant]
     Active Substance: AMLODIPINE BESYLATE
  4. IMODIUM [Concomitant]
     Active Substance: LOPERAMIDE HYDROCHLORIDE
  5. TYLENOL [Concomitant]
     Active Substance: ACETAMINOPHEN

REACTIONS (6)
  - Loss of personal independence in daily activities [None]
  - Chronic inflammatory demyelinating polyradiculoneuropathy [None]
  - Femur fracture [None]
  - Dyspnoea [None]
  - Balance disorder [None]
  - Nerve injury [None]

NARRATIVE: CASE EVENT DATE: 20140510
